FAERS Safety Report 4826588-4 (Version None)
Quarter: 2005Q4

REPORT INFORMATION
  Report Type: 
  Country: None (occurrence: None)
  Receive Date: 20051014
  Receipt Date: 20050819
  Transmission Date: 20060501
  Serious: No
  Sender: FDA-Public Use
  Company Number: 2005SP002427

PATIENT
  Age: 37 Year
  Sex: Female
  Weight: 46.2669 kg

DRUGS (2)
  1. LUNESTA [Suspect]
     Dosage: SEE IMAGE
     Route: 048
     Dates: start: 20050816, end: 20050816
  2. LUNESTA [Suspect]
     Dosage: SEE IMAGE
     Route: 048
     Dates: start: 20050816

REACTIONS (2)
  - DYSGEUSIA [None]
  - NAUSEA [None]
